FAERS Safety Report 4784350-5 (Version None)
Quarter: 2005Q3

REPORT INFORMATION
  Report Type: 
  Country: None (occurrence: None)
  Receive Date: 20050930
  Receipt Date: 20050915
  Transmission Date: 20060218
  Serious: Yes (Death)
  Sender: FDA-Public Use
  Company Number: US-JNJFOC-20050906556

PATIENT
  Sex: Female

DRUGS (30)
  1. TOPAMAX [Suspect]
  2. TOPAMAX [Suspect]
  3. TOPAMAX [Suspect]
     Indication: PAIN
  4. TOPAMAX [Suspect]
     Indication: MIGRAINE PROPHYLAXIS
  5. EFFEXOR XR [Concomitant]
  6. METHOTREXATE [Concomitant]
     Dosage: 7.5 MG EVERY WEDNESDAY
  7. PREDNISONE [Concomitant]
     Dosage: ^SWITCH TO 2^
  8. PREDNISONE [Concomitant]
  9. IRON WITH FERROUS GLUCONATE [Concomitant]
  10. HYDROCORTISONE [Concomitant]
     Dosage: AM ONE TABLET   PM  HALF TABLET
  11. HYDROXYCHLOROQUINE SULFATE [Concomitant]
  12. STOOL SOFTNER [Concomitant]
  13. FOLIC ACID [Concomitant]
  14. OXYCONTIN [Concomitant]
  15. ZYRTEC [Concomitant]
  16. CALCIUM D [Concomitant]
  17. CALCIUM D [Concomitant]
  18. CALCIUM D [Concomitant]
  19. FLUDROCORTISONE [Concomitant]
  20. RANITIDINE [Concomitant]
  21. POTASSIUM CL [Concomitant]
     Dosage: EXTENDED RELEASE
  22. LOVENOX [Concomitant]
  23. XANAX [Concomitant]
  24. IMITREX [Concomitant]
     Indication: MIGRAINE
     Dosage: TAKEN AS NEEDED
  25. PHENERGAN [Concomitant]
     Indication: VOMITING
  26. PHENERGAN [Concomitant]
     Indication: NAUSEA
     Dosage: (CAN BE TAKEN ONE EVERY 8 HOURS, AS NEEDED)
  27. SYNTHROID [Concomitant]
     Dosage: ALTERNATES WITH 25 MG
  28. SYNTHROID [Concomitant]
     Dosage: ALTERNATES WITH 50 MG
  29. PLAQUENIL [Concomitant]
     Dosage: 1 IN THE AM AND 1 IN THE PM
  30. FLEXERIL [Concomitant]

REACTIONS (1)
  - DEATH [None]
